FAERS Safety Report 7711698-4 (Version None)
Quarter: 2011Q3

REPORT INFORMATION
  Report Type: 
  Country: None (occurrence: None)
  Receive Date: 20110826
  Receipt Date: 20110815
  Transmission Date: 20111222
  Serious: No
  Sender: FDA-Public Use
  Company Number: US-B.I. PHARMACEUTICALS,INC./RIDGEFIELD-2011-BP-19992BP

PATIENT
  Sex: Male

DRUGS (6)
  1. XANAX [Concomitant]
     Indication: ANXIETY
     Dates: start: 20100101
  2. SYNTHROID [Concomitant]
     Indication: HYPOTHYROIDISM
     Dates: start: 20010101
  3. VENTOLIN HFA [Concomitant]
     Indication: CHRONIC OBSTRUCTIVE PULMONARY DISEASE
     Dates: start: 20100101
  4. SPIRIVA [Suspect]
     Indication: CHRONIC OBSTRUCTIVE PULMONARY DISEASE
     Dosage: 18 MCG
     Route: 055
     Dates: start: 20090101
  5. CARDURA [Concomitant]
     Indication: HYPERTENSION
     Dates: start: 20010101
  6. PRAVASTATIN [Concomitant]
     Indication: BLOOD CHOLESTEROL INCREASED
     Dates: start: 20010101

REACTIONS (2)
  - URINARY RETENTION [None]
  - BENIGN PROSTATIC HYPERPLASIA [None]
